FAERS Safety Report 9663409 (Version 2)
Quarter: 2013Q4

REPORT INFORMATION
  Report Type: Spontaneous
  Country: IT (occurrence: IT)
  Receive Date: 20131101
  Receipt Date: 20131111
  Transmission Date: 20140711
  Serious: Yes (Hospitalization)
  Sender: FDA-Public Use
  Company Number: IT-RANBAXY-2013RR-74740

PATIENT
  Age: 64 Year
  Sex: Male

DRUGS (1)
  1. AMOXICILLIN [Suspect]
     Indication: TOOTHACHE
     Dosage: 2 G DAILY
     Route: 048
     Dates: start: 20130520, end: 20130520

REACTIONS (2)
  - Hypotension [Recovering/Resolving]
  - Urticaria [Recovering/Resolving]
